FAERS Safety Report 15263437 (Version 5)
Quarter: 2019Q3

REPORT INFORMATION
  Report Type: Report from Study
  Country: KR (occurrence: KR)
  Receive Date: 20180810
  Receipt Date: 20190916
  Transmission Date: 20191004
  Serious: No
  Sender: FDA-Public Use
  Company Number: KR-ROCHE-2160798

PATIENT
  Age: 64 Year
  Sex: Female
  Weight: 44 kg

DRUGS (21)
  1. TRASTUZUMAB EMTANSINE [Suspect]
     Active Substance: ADO-TRASTUZUMAB EMTANSINE
     Route: 065
     Dates: start: 20180427
  2. CURAN [Concomitant]
     Active Substance: RANITIDINE HYDROCHLORIDE
     Route: 048
     Dates: start: 20180519, end: 20180519
  3. PYRIDOXINE [Concomitant]
     Active Substance: PYRIDOXINE
     Route: 048
     Dates: start: 20180428, end: 20180428
  4. PYRIDOXINE [Concomitant]
     Active Substance: PYRIDOXINE
     Route: 048
     Dates: start: 20180519, end: 20180519
  5. STOGAR [Concomitant]
     Active Substance: LAFUTIDINE
     Indication: PAIN
     Route: 048
     Dates: start: 20180502
  6. PENIRAMIN [Concomitant]
     Route: 042
     Dates: start: 20180406, end: 20180406
  7. PENIRAMIN [Concomitant]
     Route: 042
     Dates: start: 20180427, end: 20180427
  8. PENIRAMIN [Concomitant]
     Route: 042
     Dates: start: 20180518, end: 20180518
  9. LYRICA [Concomitant]
     Active Substance: PREGABALIN
     Indication: PAIN
     Route: 048
     Dates: start: 20180502
  10. TRASTUZUMAB EMTANSINE [Suspect]
     Active Substance: ADO-TRASTUZUMAB EMTANSINE
     Indication: BREAST CANCER METASTATIC
     Route: 065
     Dates: start: 20180406, end: 20180518
  11. DEXAMETHASONE. [Concomitant]
     Active Substance: DEXAMETHASONE
     Route: 042
     Dates: start: 20180406, end: 20180406
  12. DEXAMETHASONE. [Concomitant]
     Active Substance: DEXAMETHASONE
     Route: 042
     Dates: start: 20180427, end: 20180427
  13. DEXAMETHASONE. [Concomitant]
     Active Substance: DEXAMETHASONE
     Route: 042
     Dates: start: 20180518, end: 20180518
  14. CURAN [Concomitant]
     Active Substance: RANITIDINE HYDROCHLORIDE
     Route: 048
     Dates: start: 20180407, end: 20180407
  15. PYRIDOXINE [Concomitant]
     Active Substance: PYRIDOXINE
     Route: 048
     Dates: start: 20180407, end: 20180407
  16. SUSPEN ER [Concomitant]
     Route: 048
     Dates: start: 20170407, end: 20170407
  17. SUSPEN ER [Concomitant]
     Route: 048
     Dates: start: 20180428, end: 20180428
  18. CURAN [Concomitant]
     Active Substance: RANITIDINE HYDROCHLORIDE
     Route: 048
     Dates: start: 20180428, end: 20180428
  19. TRASTUZUMAB EMTANSINE [Suspect]
     Active Substance: ADO-TRASTUZUMAB EMTANSINE
     Route: 065
     Dates: start: 20180518
  20. SUSPEN ER [Concomitant]
     Route: 048
     Dates: start: 20180519, end: 20180519
  21. NUCYNTA ER [Concomitant]
     Active Substance: TAPENTADOL HYDROCHLORIDE
     Route: 048
     Dates: start: 20180502

REACTIONS (2)
  - Aspartate aminotransferase increased [Recovering/Resolving]
  - Alanine aminotransferase increased [Recovered/Resolved]

NARRATIVE: CASE EVENT DATE: 20180413
